FAERS Safety Report 8380594-4 (Version None)
Quarter: 2012Q2

REPORT INFORMATION
  Report Type: 
  Country: None (occurrence: None)
  Receive Date: 20120523
  Receipt Date: 20120512
  Transmission Date: 20120825
  Serious: Yes (Other)
  Sender: FDA-Public Use
  Company Number: US-ROCHE-1068924

PATIENT
  Age: 54 Year
  Sex: Female
  Weight: 81.72 kg

DRUGS (2)
  1. XELODA [Suspect]
     Dosage: 1000MG AT AM AND 1500 MG AT PM
     Route: 048
     Dates: start: 20120512
  2. XELODA [Suspect]
     Indication: BREAST CANCER METASTATIC
     Route: 048
     Dates: start: 20120409, end: 20120511

REACTIONS (3)
  - DYSPNOEA [None]
  - GLOSSODYNIA [None]
  - WHEEZING [None]
